FAERS Safety Report 9077108 (Version 1)
Quarter: 2013Q1

REPORT INFORMATION
  Report Type: Report from Study
  Country: US (occurrence: US)
  Receive Date: 20130129
  Receipt Date: 20130129
  Transmission Date: 20140127
  Serious: No
  Sender: FDA-Public Use
  Company Number: US-ABBOTT-12P-163-0947811-00

PATIENT
  Age: 61 Year
  Sex: Female

DRUGS (11)
  1. HUMIRA 40 MG/0.8 ML PEN [Suspect]
     Indication: CROHN^S DISEASE
     Dates: start: 20120417
  2. BACLOFEN [Concomitant]
     Indication: MUSCLE SPASMS
  3. ESTRADIOL [Concomitant]
     Indication: HORMONE REPLACEMENT THERAPY
  4. ESTRADIOL [Concomitant]
     Indication: HORMONE REPLACEMENT THERAPY
  5. MEDROXIPROGESTERONE [Concomitant]
     Indication: HORMONE REPLACEMENT THERAPY
     Dosage: 5MG DAILY
  6. MELOXICAM [Concomitant]
     Indication: FIBROMYALGIA
  7. NEXIUM [Concomitant]
     Indication: PRODUCT USED FOR UNKNOWN INDICATION
  8. ZOLOFT [Concomitant]
     Indication: ANXIETY
  9. ZOLOFT [Concomitant]
     Indication: DEPRESSION
  10. SIMVASTATIN [Concomitant]
     Indication: BLOOD CHOLESTEROL INCREASED
  11. ROPINIROLE [Concomitant]
     Indication: MUSCLE SPASMS

REACTIONS (11)
  - Malaise [Not Recovered/Not Resolved]
  - Fatigue [Not Recovered/Not Resolved]
  - Somnolence [Not Recovered/Not Resolved]
  - Feeling abnormal [Not Recovered/Not Resolved]
  - Drug ineffective [Not Recovered/Not Resolved]
  - Abdominal pain upper [Not Recovered/Not Resolved]
  - Pain [Not Recovered/Not Resolved]
  - Back pain [Not Recovered/Not Resolved]
  - Alopecia [Not Recovered/Not Resolved]
  - Alopecia [Not Recovered/Not Resolved]
  - Crohn^s disease [Not Recovered/Not Resolved]
